FAERS Safety Report 22399158 (Version 3)
Quarter: 2023Q2

REPORT INFORMATION
  Report Type: Spontaneous
  Country: US (occurrence: US)
  Receive Date: 20230602
  Receipt Date: 20230620
  Transmission Date: 20230722
  Serious: Yes (Disabling, Other)
  Sender: FDA-Public Use
  Company Number: US-REGENERON PHARMACEUTICALS, INC.-2023-072223

PATIENT
  Age: 61 Year
  Sex: Female

DRUGS (1)
  1. EYLEA [Suspect]
     Active Substance: AFLIBERCEPT
     Indication: Product used for unknown indication
     Dosage: UNK; FORMULATION: PRE-FILLED SYRINGE (GERRESHEIMER)

REACTIONS (2)
  - Blindness unilateral [Unknown]
  - Endophthalmitis [Recovering/Resolving]

NARRATIVE: CASE EVENT DATE: 20230429
